FAERS Safety Report 12248663 (Version 1)
Quarter: 2016Q2

REPORT INFORMATION
  Report Type: Spontaneous
  Country: US (occurrence: US)
  Receive Date: 20160408
  Receipt Date: 20160408
  Transmission Date: 20160815
  Serious: No
  Sender: FDA-Public Use
  Company Number: US-PFIZER INC-2016167136

PATIENT
  Age: 59 Year

DRUGS (1)
  1. IBRANCE [Suspect]
     Active Substance: PALBOCICLIB
     Indication: BREAST CANCER
     Dosage: 125 MG, CYCLIC (TWICE A DAY FOR 21 DAYS)
     Route: 048

REACTIONS (2)
  - Alopecia [Unknown]
  - Product use issue [Unknown]
